FAERS Safety Report 6882889-X (Version None)
Quarter: 2010Q3

REPORT INFORMATION
  Report Type: 
  Country: None (occurrence: None)
  Receive Date: 20100729
  Receipt Date: 20100708
  Transmission Date: 20110219
  Serious: Yes (Death, Other)
  Sender: FDA-Public Use
  Company Number: BR-PFIZER INC-2010085772

PATIENT
  Sex: Male
  Weight: 68 kg

DRUGS (2)
  1. VIAGRA [Suspect]
     Indication: ERECTILE DYSFUNCTION
     Dosage: UNK
  2. ASPIRIN [Concomitant]
     Indication: COAGULOPATHY

REACTIONS (4)
  - BLOOD PRESSURE FLUCTUATION [None]
  - DEATH [None]
  - DYSPNOEA [None]
  - PROSTATE CANCER [None]
